FAERS Safety Report 20517963 (Version 1)
Quarter: 2022Q1

REPORT INFORMATION
  Report Type: Spontaneous
  Country: FR (occurrence: FR)
  Receive Date: 20220225
  Receipt Date: 20220225
  Transmission Date: 20220423
  Serious: Yes (Hospitalization)
  Sender: FDA-Public Use
  Company Number: FR-MYLANLABS-2022M1015518

PATIENT
  Age: 71 Year
  Sex: Female

DRUGS (2)
  1. EPIRUBICIN [Suspect]
     Active Substance: EPIRUBICIN
     Indication: Breast cancer
     Dosage: THROUGH PORT-A-CATH
     Route: 042
  2. CYCLOPHOSPHAMIDE [Concomitant]
     Active Substance: CYCLOPHOSPHAMIDE
     Indication: Breast cancer
     Dosage: THROUGH PORT-A-CATH
     Route: 042

REACTIONS (5)
  - Pain [Recovered/Resolved]
  - Inflammation [Recovered/Resolved]
  - Skin necrosis [Recovered/Resolved]
  - Administration site extravasation [Recovered/Resolved]
  - Musculoskeletal disorder [Recovered/Resolved]
